FAERS Safety Report 9212858 (Version 1)
Quarter: 2013Q1

REPORT INFORMATION
  Report Type: Spontaneous
  Country: US (occurrence: None)
  Receive Date: 20120824
  Receipt Date: 20120824
  Transmission Date: 20140127
  Serious: Yes (Hospitalization)
  Sender: FDA-Public Use
  Company Number: A-US2011-58740

PATIENT
  Age: 54 Year
  Sex: Female
  Weight: 96.1 kg

DRUGS (20)
  1. VELETRI [Suspect]
     Indication: PULMONARY ARTERIAL HYPERTENSION
     Dosage: 25 NG/KG. PER MIN, INTRAVENOUS
     Route: 042
     Dates: start: 20101124
  2. SILDENAFIL (SILDENAFIL) [Concomitant]
  3. COUMADIN (WARFARIN SODIUM) [Concomitant]
  4. SPIRONOLACTONE (SPIRONOLACTONE) [Concomitant]
  5. ASCORBIC ACID (ASCORBIC ACID) [Concomitant]
  6. ASPIRIN (ACETYLSALICYLIC ACID) [Concomitant]
  7. FUROSEMIDE (FUROSEMIDE) [Concomitant]
  8. GLIPIZIDE (GLIPIZIDE) [Concomitant]
  9. NORCO (HYDROCODONE BITARTRATE, PARACETAMOL) [Concomitant]
  10. LANTUS (INSULIN GLARGINE) [Concomitant]
  11. SYNTHROID (LEVOTHYROXINE SODIUM) [Concomitant]
  12. LIDOCAINE (LIDOCAINE HYDROCHLORIDE) [Concomitant]
  13. MORPHINE [Concomitant]
  14. ONDANSETRON (ONDANSETRON) [Concomitant]
  15. POLYETHYLENE GLYCOL (MACROGOL) [Concomitant]
  16. POTASSIUM CHLORIDE (POTASSIUM CHLORIDE) [Concomitant]
  17. SEROQUEL (QUETIAPINE FUMARATE) [Concomitant]
  18. RANITIDINE (RANITIDINE) [Concomitant]
  19. SIMVASTATIN (SIMVASTATIN) [Concomitant]
  20. SODIUM CHLORIDE (SODIUM CHLORIDE) [Concomitant]

REACTIONS (1)
  - Device issue [None]
